FAERS Safety Report 18296723 (Version 1)
Quarter: 2020Q3

REPORT INFORMATION
  Report Type: Spontaneous
  Country: DE (occurrence: DE)
  Receive Date: 20200922
  Receipt Date: 20200922
  Transmission Date: 20201103
  Serious: Yes (Hospitalization, Other)
  Sender: FDA-Public Use
  Company Number: DE-PFIZER INC-2020362521

PATIENT
  Age: 64 Year
  Sex: Female

DRUGS (14)
  1. RIOPAN [MAGALDRATE] [Concomitant]
     Active Substance: MAGALDRATE
     Dosage: UNK, 1X/DAY 0?0?1?0, GEL
  2. VIANI [Concomitant]
     Active Substance: FLUTICASONE PROPIONATE\SALMETEROL XINAFOATE
     Dosage: UNK UNK, 2X/DAY 500/50 ?G, 1?0?1?0, INHALATOR
     Route: 055
  3. NALOXONE HYDROCHLORIDE/TILIDINE HYDROCHLORIDE [Suspect]
     Active Substance: NALOXONE HYDROCHLORIDE\TILIDINE HYDROCHLORIDE
     Dosage: UNK
  4. RAMIPRIL. [Concomitant]
     Active Substance: RAMIPRIL
     Dosage: 25 MG, 1X/DAY 1?0?0?0, TABLETS
  5. ATORVASTATIN [Concomitant]
     Active Substance: ATORVASTATIN
     Dosage: 60 MG, 1X/DAY 0?0?1?0, TABLETS
  6. SPIRIVA [Concomitant]
     Active Substance: TIOTROPIUM BROMIDE MONOHYDRATE
     Dosage: 18 UG, 1X/DAY INHALATOR
     Route: 055
  7. ASPIRIN. [Concomitant]
     Active Substance: ASPIRIN
     Dosage: 100 MG, 1X/DAY 0?1?0?0, TABLETS
  8. ALLOPURINOL. [Concomitant]
     Active Substance: ALLOPURINOL
     Dosage: 0.5 DF, 1X/DAY: 0.5?0?0?0, TABLETS
  9. ACTRAPID [Concomitant]
     Active Substance: INSULIN HUMAN
     Dosage: ACCORDING TO BLOOD SUGAR? INJECTION/INFUSION SOLUTION
  10. INSULIN GLARGINE [Concomitant]
     Active Substance: INSULIN GLARGINE
     Dosage: 24 IU, 1X/DAY 0?1?0?0 INJECTION / INFUSION SOLUTION
  11. METAMIZOLE [Concomitant]
     Active Substance: METAMIZOLE
     Dosage: 50 MG, AS NEEDED, TABLETS
  12. METHOTREXATE SODIUM. [Suspect]
     Active Substance: METHOTREXATE SODIUM
     Dosage: 10 MG, WEEKLY ON TUESDAYS, TABLETS
  13. SITAGLIPTIN METFORMIN [Concomitant]
     Active Substance: METFORMIN HYDROCHLORIDE\SITAGLIPTIN PHOSPHATE
     Dosage: UNK, 2X/DAY 500/50 MG, 1?0?1?0, TABLETS
  14. FOLIC ACID. [Concomitant]
     Active Substance: FOLIC ACID
     Dosage: 5 MG, WEEKLY ON WEDNESDAYS, TABLETS

REACTIONS (8)
  - Dizziness [Unknown]
  - White blood cell count decreased [Unknown]
  - Anaemia macrocytic [Unknown]
  - Liver function test increased [Unknown]
  - Circulatory collapse [Unknown]
  - Abdominal pain upper [Unknown]
  - Hepatic failure [Unknown]
  - Contusion [Unknown]
